FAERS Safety Report 8000800-5 (Version None)
Quarter: 2011Q4

REPORT INFORMATION
  Report Type: 
  Country: None (occurrence: None)
  Receive Date: 20111222
  Receipt Date: 20111219
  Transmission Date: 20120403
  Serious: No
  Sender: FDA-Public Use
  Company Number: US-BAYER-2011-122463

PATIENT
  Age: 38 Year
  Sex: Female
  Weight: 100 kg

DRUGS (2)
  1. ALEVE (CAPLET) [Suspect]
     Indication: ANALGESIC THERAPY
     Dosage: 2 DF, QID
     Route: 048
  2. MIDOL MENSTRUAL COMPLETE CAPLETS [Suspect]
     Dosage: 2 DF, ONCE
     Route: 048
     Dates: start: 20111219, end: 20111219

REACTIONS (2)
  - PAIN [None]
  - NO ADVERSE EVENT [None]
